FAERS Safety Report 8478446-4 (Version None)
Quarter: 2012Q2

REPORT INFORMATION
  Report Type: 
  Country: None (occurrence: None)
  Receive Date: 20120629
  Receipt Date: 20120619
  Transmission Date: 20120825
  Serious: Yes (Other)
  Sender: FDA-Public Use
  Company Number: CA-JNJFOC-20120610575

PATIENT
  Sex: Female
  Weight: 55.34 kg

DRUGS (7)
  1. REMICADE [Suspect]
     Dosage: INFUSION # 8
     Route: 042
     Dates: start: 20120619
  2. CORTEF [Concomitant]
     Route: 065
  3. SLEEPING PILL NOS [Concomitant]
     Route: 065
  4. MIRAPEX [Concomitant]
     Route: 065
  5. ESCITALOPRAM [Concomitant]
     Route: 065
  6. REMICADE [Suspect]
     Indication: RHEUMATOID ARTHRITIS
     Route: 042
  7. METHOTREXATE [Concomitant]
     Route: 065

REACTIONS (5)
  - PYREXIA [None]
  - HEADACHE [None]
  - CHILLS [None]
  - PALLOR [None]
  - INFUSION RELATED REACTION [None]
